FAERS Safety Report 10046646 (Version 1)
Quarter: 2014Q1

REPORT INFORMATION
  Report Type: Spontaneous
  Country: US (occurrence: None)
  Receive Date: 20140328
  Receipt Date: 20140328
  Transmission Date: 20141002
  Serious: Yes (Other)
  Sender: FDA-Public Use
  Company Number: None

PATIENT
  Age: 75 Year
  Sex: Male
  Weight: 94.35 kg

DRUGS (10)
  1. MYRBETRIQ [Suspect]
     Indication: HYPERTONIC BLADDER
     Route: 048
     Dates: start: 20140128, end: 20140127
  2. POTASSIUM [Concomitant]
  3. TORSEMIDE [Concomitant]
  4. CRESTOR [Concomitant]
  5. FINASTERIDE [Concomitant]
  6. SYNTHROID [Concomitant]
  7. B-12 [Concomitant]
  8. PANTOPRAZOLE [Concomitant]
  9. LANTUS [Concomitant]
  10. HUMULIN [Concomitant]

REACTIONS (1)
  - No therapeutic response [None]
